FAERS Safety Report 10593929 (Version 2)
Quarter: 2014Q4

REPORT INFORMATION
  Report Type: Spontaneous
  Country: IT (occurrence: IT)
  Receive Date: 20141119
  Receipt Date: 20141126
  Transmission Date: 20150529
  Serious: Yes (Hospitalization)
  Sender: FDA-Public Use
  Company Number: IT-BAYER-2014-170671

PATIENT
  Age: 84 Year
  Sex: Male

DRUGS (10)
  1. ACTOS [Concomitant]
     Active Substance: PIOGLITAZONE HYDROCHLORIDE
     Dosage: 30 MG, QD
  2. MEPRAL [Concomitant]
     Active Substance: OMEPRAZOLE SODIUM
     Dosage: 20 MG, QD
  3. CARDIOASPIRIN [Suspect]
     Active Substance: ASPIRIN
     Indication: PROPHYLAXIS
     Dosage: 100 MG, QD
     Route: 048
     Dates: start: 20140322, end: 20140718
  4. APROVEL [Concomitant]
     Active Substance: IRBESARTAN
     Indication: ESSENTIAL HYPERTENSION
     Dosage: 300 MG, QD
     Route: 048
     Dates: start: 20140322, end: 20140718
  5. NOVONORM [Concomitant]
     Active Substance: REPAGLINIDE
     Indication: DIABETES MELLITUS
     Dosage: 1 ML, QD
     Dates: start: 20140322, end: 20141112
  6. ZYLORIC [Concomitant]
     Active Substance: ALLOPURINOL
     Dosage: 300 MG, QD
  7. SINVACOR [Concomitant]
     Active Substance: SIMVASTATIN
     Dosage: 20 MG, QD
  8. PRISMA [Concomitant]
     Dosage: 50 MG, QD
  9. SINTROM [Suspect]
     Active Substance: ACENOCOUMAROL
     Indication: PROPHYLAXIS
     Dosage: 4 MG, QD
     Route: 048
     Dates: start: 20140322
  10. NORVASC [Concomitant]
     Active Substance: AMLODIPINE BESYLATE
     Dosage: 5 MG, QD

REACTIONS (2)
  - Hypocoagulable state [Recovered/Resolved with Sequelae]
  - Anaemia [Recovered/Resolved with Sequelae]

NARRATIVE: CASE EVENT DATE: 20140718
